FAERS Safety Report 15724910 (Version 1)
Quarter: 2018Q4

REPORT INFORMATION
  Report Type: Spontaneous
  Country: US (occurrence: US)
  Receive Date: 20181214
  Receipt Date: 20181214
  Transmission Date: 20190205
  Serious: Yes (Other)
  Sender: FDA-Public Use
  Company Number: US-TEVA-2018-US-986049

PATIENT
  Sex: Male

DRUGS (2)
  1. AMLODIPINE AND VALSARTAN TABLETS [Suspect]
     Active Substance: AMLODIPINE\VALSARTAN
     Indication: HYPERTENSION
     Dosage: DOSE STRENGTH:  5 MG/160 MG, 5 YEAR AGO
     Route: 065
  2. AMLODIPIN BESYLATE 5MG [Suspect]
     Active Substance: AMLODIPINE BESYLATE

REACTIONS (4)
  - Lymphoedema [Unknown]
  - Thyroid cancer [Unknown]
  - Fluid retention [Unknown]
  - Recalled product administered [Unknown]
